FAERS Safety Report 7542544-X (Version None)
Quarter: 2011Q2

REPORT INFORMATION
  Report Type: 
  Country: None (occurrence: None)
  Receive Date: 20110613
  Receipt Date: 20110607
  Transmission Date: 20111010
  Serious: Yes (Hospitalization, Disabling)
  Sender: FDA-Public Use
  Company Number: FI-SHIRE-CQT2-2011-00022

PATIENT
  Sex: Female

DRUGS (17)
  1. ANAGRELIDE HCL [Suspect]
     Indication: ESSENTIAL THROMBOCYTHAEMIA
     Dosage: 1 MG, 2X/DAY:BID
     Route: 048
     Dates: start: 20050622, end: 20051001
  2. ASPIRIN [Suspect]
     Dosage: 50 MG, 1X/DAY:QD
     Route: 048
     Dates: start: 20070208, end: 20070201
  3. HYDROXYUREA [Suspect]
     Dosage: 1500 MG, DIVIDED INTO TWO DOSES
     Route: 048
     Dates: start: 20081103, end: 20090612
  4. HYDROXYUREA [Suspect]
     Dosage: 500 MG, 15500 MG PER WEEK
     Route: 048
     Dates: start: 20080320, end: 20080512
  5. HYDROXYUREA [Suspect]
     Dosage: 1000 MG, 2X/DAY:BID
     Route: 048
     Dates: start: 20080220, end: 20080320
  6. HYDROXYUREA [Suspect]
     Dosage: 500 MG, 2X/DAY:BID
     Route: 048
     Dates: start: 20110117
  7. LAMOTRIGINE [Concomitant]
     Indication: MIGRAINE
     Dosage: 25 MG, 1X/DAY:QD
     Route: 048
     Dates: start: 20051220
  8. ANAGRELIDE HCL [Suspect]
     Dosage: 1 MG, 2X/DAY:BID
     Route: 048
     Dates: start: 20031118, end: 20041201
  9. PEGINTERFERON ALFA-2A [Suspect]
     Indication: ESSENTIAL THROMBOCYTHAEMIA
     Dosage: 3.0 MILLION IU, 5 TIMES PER WEEK
     Route: 058
     Dates: start: 20060727, end: 20080215
  10. PEGINTERFERON ALFA-2A [Suspect]
     Dosage: 3.0 MILLION IU, 3 TIMES PER WEEK
     Route: 058
     Dates: start: 20051231, end: 20060727
  11. PEGINTERFERON ALFA-2A [Suspect]
     Dosage: 3.0 MILLION IU, 3 TIMES PER WEEK
     Route: 058
     Dates: start: 20030819, end: 20030915
  12. PEGINTERFERON ALFA-2A [Suspect]
     Dosage: 3.0 MILLION IU, 3 TIMES PER WEEK
     Route: 058
     Dates: start: 20050217, end: 20050622
  13. ASPIRIN [Suspect]
     Dosage: 100 MG, 1X/DAY:QD
     Route: 048
     Dates: start: 20041217, end: 20060601
  14. HYDROXYUREA [Suspect]
     Dosage: 1000 MG, 2X/DAY:BID
     Route: 048
     Dates: start: 20080512, end: 20081103
  15. ASPIRIN [Suspect]
     Indication: ESSENTIAL THROMBOCYTHAEMIA
     Dosage: 100 MG, 1X/DAY:QD
     Route: 048
     Dates: start: 20070227
  16. HYDROXYUREA [Suspect]
     Indication: ESSENTIAL THROMBOCYTHAEMIA
     Dosage: 500 MG, 2X/DAY:BID
     Route: 048
     Dates: start: 20080215, end: 20080220
  17. HYDROXYUREA [Suspect]
     Dosage: 500 MG, 11500 MG PER WEEK
     Route: 048
     Dates: start: 20090612, end: 20090701

REACTIONS (1)
  - VASCULITIS CEREBRAL [None]
